FAERS Safety Report 19967643 (Version 1)
Quarter: 2021Q4

REPORT INFORMATION
  Report Type: Spontaneous
  Country: CN (occurrence: CN)
  Receive Date: 20211019
  Receipt Date: 20211019
  Transmission Date: 20220303
  Serious: Yes (Death, Hospitalization, Other)
  Sender: FDA-Public Use
  Company Number: CN-ALKEM LABORATORIES LIMITED-CN-ALKEM-2021-06281

PATIENT
  Age: 68 Year
  Sex: Female

DRUGS (1)
  1. AZATHIOPRINE [Suspect]
     Active Substance: AZATHIOPRINE
     Indication: Myasthenia gravis
     Dosage: 100 MILLIGRAM, QD
     Route: 065

REACTIONS (4)
  - Acute respiratory distress syndrome [Fatal]
  - Nephrotic syndrome [Fatal]
  - Cytomegalovirus infection [Fatal]
  - Pneumonia bacterial [Fatal]
